FAERS Safety Report 4802502-2 (Version None)
Quarter: 2005Q4

REPORT INFORMATION
  Report Type: 
  Country: None (occurrence: None)
  Receive Date: 20051018
  Receipt Date: 20051013
  Transmission Date: 20060501
  Serious: Yes (Hospitalization)
  Sender: FDA-Public Use
  Company Number: US-MERCK-0510USA06980

PATIENT
  Age: 56 Year
  Sex: Male

DRUGS (6)
  1. VIOXX [Suspect]
     Indication: MUSCLE ATROPHY
     Route: 048
     Dates: start: 20020101, end: 20040101
  2. VIOXX [Suspect]
     Indication: BONE DENSITY DECREASED
     Route: 048
     Dates: start: 20020101, end: 20040101
  3. OXYCONTIN [Concomitant]
     Route: 065
  4. LORCET-HD [Concomitant]
     Route: 065
  5. XANAX [Concomitant]
     Route: 065
  6. [THERAPY UNSPECIFIED] [Concomitant]
     Route: 065

REACTIONS (1)
  - MYOCARDIAL INFARCTION [None]
